FAERS Safety Report 14978973 (Version 2)
Quarter: 2018Q3

REPORT INFORMATION
  Report Type: Spontaneous
  Country: JP (occurrence: JP)
  Receive Date: 20180606
  Receipt Date: 20180727
  Transmission Date: 20181010
  Serious: Yes (Death)
  Sender: FDA-Public Use
  Company Number: JP-PFIZER INC-2018221358

PATIENT
  Age: 66 Year
  Sex: Male
  Weight: 52 kg

DRUGS (1)
  1. INLYTA [Suspect]
     Active Substance: AXITINIB
     Indication: RENAL CELL CARCINOMA
     Dosage: 5 MG, 2X/DAY
     Route: 048
     Dates: start: 20180515, end: 201805

REACTIONS (4)
  - Pneumonia [Fatal]
  - Decreased appetite [Unknown]
  - Neoplasm progression [Fatal]
  - Dyspnoea [Unknown]

NARRATIVE: CASE EVENT DATE: 201805
